APPROVED DRUG PRODUCT: FAMOTIDINE
Active Ingredient: FAMOTIDINE
Strength: 10MG/ML
Dosage Form/Route: INJECTABLE;INJECTION
Application: A075905 | Product #001
Applicant: HOSPIRA INC
Approved: Nov 23, 2001 | RLD: No | RS: No | Type: DISCN